FAERS Safety Report 21463956 (Version 1)
Quarter: 2022Q4

REPORT INFORMATION
  Report Type: Report from Study
  Country: US (occurrence: US)
  Receive Date: 20221017
  Receipt Date: 20221017
  Transmission Date: 20230112
  Serious: Yes (Hospitalization)
  Sender: FDA-Public Use
  Company Number: US-ABBVIE-22K-163-4331659-00

PATIENT
  Sex: Male
  Weight: 116.11 kg

DRUGS (6)
  1. HUMIRA [Suspect]
     Active Substance: ADALIMUMAB
     Indication: Psoriatic arthropathy
     Route: 058
  2. HUMIRA [Suspect]
     Active Substance: ADALIMUMAB
     Indication: Psoriatic arthropathy
     Dosage: STARTED EIGHT TO TEN YEARS AGO?FORM STRENGTH: 40 MILLIGRAM
     Route: 058
  3. MODERNA COVID-19 VACCINE [Concomitant]
     Active Substance: ELASOMERAN
     Indication: COVID-19 immunisation
     Dosage: TIME INTERVAL: 1 TOTAL: 1ST DOSE?MODERNA: 012M20A
     Route: 030
     Dates: start: 20210203, end: 20210203
  4. MODERNA COVID-19 VACCINE [Concomitant]
     Active Substance: ELASOMERAN
     Indication: COVID-19 immunisation
     Dosage: TIME INTERVAL: 1 TOTAL: MODERNA: 003A21A?2ND DOSE
     Route: 030
     Dates: start: 20210303, end: 20210303
  5. MODERNA COVID-19 VACCINE [Concomitant]
     Active Substance: ELASOMERAN
     Indication: COVID-19 immunisation
     Dosage: TIME INTERVAL: 1 TOTAL: MODERNA: 939906 ?3RD DOSE
     Route: 030
     Dates: start: 20211103, end: 20211103
  6. MODERNA COVID-19 VACCINE [Concomitant]
     Active Substance: ELASOMERAN
     Indication: COVID-19 immunisation
     Dosage: TIME INTERVAL: 1 TOTAL: MODERNA: 027L21A
     Route: 030
     Dates: start: 20220525, end: 20220525

REACTIONS (8)
  - Cholelithiasis [Recovered/Resolved]
  - Gastrointestinal disorder [Recovered/Resolved]
  - Abdominal distension [Recovered/Resolved]
  - Swelling [Recovered/Resolved]
  - Diabetes mellitus [Unknown]
  - Cardiac failure [Unknown]
  - Chronic kidney disease [Unknown]
  - Hypertension [Unknown]

NARRATIVE: CASE EVENT DATE: 20180101
